FAERS Safety Report 9903019 (Version 1)
Quarter: 2014Q1

REPORT INFORMATION
  Report Type: Report from Study
  Country: KR (occurrence: KR)
  Receive Date: 20140217
  Receipt Date: 20140217
  Transmission Date: 20141002
  Serious: Yes (Hospitalization)
  Sender: FDA-Public Use
  Company Number: PHHO2014KR002203

PATIENT
  Age: 87 Year
  Sex: Female
  Weight: 45.9 kg

DRUGS (7)
  1. AFINITOR [Suspect]
     Indication: BREAST CANCER METASTATIC
     Dosage: 10 MG, QD
     Route: 048
     Dates: start: 20131225, end: 20140129
  2. EXEMESTANE [Suspect]
     Indication: BREAST CANCER METASTATIC
     Dosage: 25 MG, QD
     Route: 048
     Dates: start: 20131225
  3. LOSARTAN [Concomitant]
     Indication: HYPERTENSION
     Dosage: 50 MG, QD
     Route: 048
  4. RABETRA [Concomitant]
     Indication: PROPHYLAXIS
     Dosage: 10 MG, QD
     Route: 048
  5. SYNTHYROID [Concomitant]
     Indication: THYROIDECTOMY
     Dosage: 100 UG, QD
     Route: 048
  6. ALFOCHOLINE [Concomitant]
     Indication: PROPHYLAXIS
     Dosage: 400 MG, QD
     Route: 048
  7. MUCOSTA [Concomitant]
     Indication: STOMATITIS
     Dosage: 100 MG, TID
     Route: 048
     Dates: start: 20140107

REACTIONS (1)
  - Dyspepsia [Not Recovered/Not Resolved]
